APPROVED DRUG PRODUCT: PAVULON
Active Ingredient: PANCURONIUM BROMIDE
Strength: 2MG/ML **Federal Register determination that product was not discontinued or withdrawn for safety or effectiveness reasons**
Dosage Form/Route: INJECTABLE;INJECTION
Application: N017015 | Product #001
Applicant: ORGANON USA INC
Approved: Approved Prior to Jan 1, 1982 | RLD: Yes | RS: No | Type: DISCN